FAERS Safety Report 17375770 (Version 1)
Quarter: 2020Q1

REPORT INFORMATION
  Report Type: Spontaneous
  Country: CN (occurrence: CN)
  Receive Date: 20200206
  Receipt Date: 20200206
  Transmission Date: 20200409
  Serious: Yes (Death, Hospitalization, Other)
  Sender: FDA-Public Use
  Company Number: CN-LUPIN PHARMACEUTICALS INC.-2020-00468

PATIENT
  Age: 19 Year
  Sex: Female

DRUGS (1)
  1. METHYLPREDNISOLONE. [Suspect]
     Active Substance: METHYLPREDNISOLONE
     Indication: SYSTEMIC LUPUS ERYTHEMATOSUS
     Dosage: 24 MILLIGRAM, QD
     Route: 065

REACTIONS (7)
  - Pigmentation disorder [Unknown]
  - Rash papular [Unknown]
  - Abdominal pain [Unknown]
  - Haemorrhagic varicella syndrome [Fatal]
  - Dyschezia [Unknown]
  - Multiple organ dysfunction syndrome [Fatal]
  - Shock [Fatal]
